FAERS Safety Report 16613422 (Version 1)
Quarter: 2019Q3

REPORT INFORMATION
  Report Type: Spontaneous
  Country: DE (occurrence: DE)
  Receive Date: 20190723
  Receipt Date: 20190723
  Transmission Date: 20191004
  Serious: Yes (Death, Life-Threatening, Hospitalization)
  Sender: FDA-Public Use
  Company Number: DE-ASTRAZENECA-2019SF01906

PATIENT
  Age: 79 Year
  Sex: Female

DRUGS (18)
  1. METOPROLOL. [Concomitant]
     Active Substance: METOPROLOL
     Dosage: 47.5 MG, 1-0-0-1
  2. FERRO SANOL [Concomitant]
     Active Substance: FERROUS GLYCINE SULFATE
     Dosage: NK MG, 20-20-20-0, DROPS
  3. VIMPAT [Concomitant]
     Active Substance: LACOSAMIDE
     Dosage: 100 MG, 1-0-0-1
  4. LEVETIRACETAM. [Concomitant]
     Active Substance: LEVETIRACETAM
     Dosage: 100 MG, 1-0-0-1
  5. DEXPANTHENOL. [Concomitant]
     Active Substance: DEXPANTHENOL
     Dosage: NK MG, NK
     Route: 047
  6. FOLIC ACID. [Concomitant]
     Active Substance: FOLIC ACID
     Dosage: NK MG, 1-0-0-0
  7. CANDESARTAN. [Concomitant]
     Active Substance: CANDESARTAN
     Dosage: 16 MG, 1-0-0-0
  8. ATROVENT [Concomitant]
     Active Substance: IPRATROPIUM BROMIDE
     Dosage: NK MG, 4 X PER DAY
  9. MOVICOL [Concomitant]
     Active Substance: POLYETHYLENE GLYCOL 3350\POTASSIUM CHLORIDE\SODIUM BICARBONATE\SODIUM CHLORIDE
     Dosage: NK MG, 1-0-0-0
  10. APIXABAN [Suspect]
     Active Substance: APIXABAN
     Dosage: NK MG, DISCONTINUED SINCE 11-DEC-2016
     Route: 065
  11. KALIUM [Concomitant]
     Active Substance: POTASSIUM CHLORIDE
     Dosage: NK MG, 1-0-0-0, EFFERVESCENT TABLETS
  12. TORASEMIDE [Concomitant]
     Active Substance: TORSEMIDE
     Dosage: 10 MG, 1-0-0-0
  13. ASTONIN (CYPROHEPTADINE HYDROCHLORIDE) [Suspect]
     Active Substance: CYPROHEPTADINE HYDROCHLORIDE
     Dosage: 0.1 MG, 0-1-0-0
     Route: 065
  14. REFOBACIN [Concomitant]
     Active Substance: GENTAMICIN SULFATE
     Dosage: NK MG, NK, OINTMENT
     Route: 047
  15. SALBUTAMOL [Concomitant]
     Active Substance: ALBUTEROL
     Dosage: NK MG, 4 X PER DAY
  16. PULMICORT TURBUHALER [Suspect]
     Active Substance: BUDESONIDE
     Dosage: NK ?G, 2 X PER DAY
     Route: 065
  17. AMLODIPIN [Concomitant]
     Active Substance: AMLODIPINE BESYLATE
     Dosage: 10 MG, 0-1-0-0
  18. AMANTADIN [Concomitant]
     Active Substance: AMANTADINE
     Dosage: 100 MG, 1-1-0-0

REACTIONS (2)
  - Dyspnoea [Unknown]
  - Pyrexia [Unknown]
